FAERS Safety Report 11525162 (Version 1)
Quarter: 2015Q3

REPORT INFORMATION
  Report Type: Spontaneous
  Country: US (occurrence: US)
  Receive Date: 20150918
  Receipt Date: 20150918
  Transmission Date: 20151125
  Serious: No
  Sender: FDA-Public Use
  Company Number: US-TARO-2014TAR00435

PATIENT
  Age: 61 Year
  Sex: Female

DRUGS (7)
  1. VITAMIN E [Concomitant]
     Active Substance: .ALPHA.-TOCOPHEROL
  2. DESONIDE OINTMENT USP 0.05% [Suspect]
     Active Substance: DESONIDE
     Indication: CHAPPED LIPS
     Dosage: UNK, AS NEEDED
     Route: 061
     Dates: start: 20140922
  3. CEPHALEXIN. [Concomitant]
     Active Substance: CEPHALEXIN
     Dosage: 500 MG, 2X/DAY
     Dates: start: 201409
  4. CEPHALEXIN. [Concomitant]
     Active Substance: CEPHALEXIN
     Dosage: 2000 MG, 1X/DAY
     Dates: start: 201409, end: 201409
  5. MUPIROCIN 2% OINTMENT [Suspect]
     Active Substance: MUPIROCIN
     Indication: BIOPSY LIP
     Dosage: UNK UNK, 2X/DAY
     Route: 061
     Dates: end: 20141001
  6. MYRBETRIQ [Concomitant]
     Active Substance: MIRABEGRON
     Dosage: 25 MG, 1X/DAY
  7. MULTIVITAMIN [Concomitant]
     Active Substance: VITAMINS

REACTIONS (3)
  - Lip pain [Not Recovered/Not Resolved]
  - Hypersensitivity [Not Recovered/Not Resolved]
  - Cheilitis [Not Recovered/Not Resolved]

NARRATIVE: CASE EVENT DATE: 20141001
